FAERS Safety Report 10472850 (Version 2)
Quarter: 2014Q4

REPORT INFORMATION
  Report Type: Spontaneous
  Country: JP (occurrence: JP)
  Receive Date: 20140924
  Receipt Date: 20141020
  Transmission Date: 20150528
  Serious: Yes (Hospitalization)
  Sender: FDA-Public Use
  Company Number: JP-SA-2014SA129143

PATIENT
  Age: 73 Year
  Sex: Male

DRUGS (1)
  1. BCG FOR IMMUNOTHERAPY [Suspect]
     Active Substance: BACILLUS CALMETTE-GUERIN SUBSTRAIN TICE LIVE ANTIGEN
     Indication: BLADDER CANCER
     Route: 043

REACTIONS (7)
  - Conjunctival hyperaemia [Unknown]
  - Seronegative arthritis [Unknown]
  - Polyarthritis [Unknown]
  - Oedema [Unknown]
  - Pyrexia [Unknown]
  - Neck pain [Unknown]
  - Arthritis [Unknown]
